FAERS Safety Report 12336463 (Version 1)
Quarter: 2016Q2

REPORT INFORMATION
  Report Type: Spontaneous
  Country: NO (occurrence: NO)
  Receive Date: 20160505
  Receipt Date: 20160505
  Transmission Date: 20160815
  Serious: Yes (Death)
  Sender: FDA-Public Use
  Company Number: NO-ACCORD-040313

PATIENT
  Age: 29 Year
  Sex: Male

DRUGS (6)
  1. CODEINE [Suspect]
     Active Substance: CODEINE
  2. DIAZEPAM. [Suspect]
     Active Substance: DIAZEPAM
  3. LEVOMEPROMAZINE [Suspect]
     Active Substance: LEVOMEPROMAZINE
  4. OXAZEPAM. [Suspect]
     Active Substance: OXAZEPAM
  5. TRAMADOL/TRAMADOL HYDROCHLORIDE [Suspect]
     Active Substance: TRAMADOL HYDROCHLORIDE
  6. PARACETAMOL [Suspect]
     Active Substance: ACETAMINOPHEN

REACTIONS (1)
  - Toxicity to various agents [Fatal]
